FAERS Safety Report 19970637 (Version 1)
Quarter: 2021Q4

REPORT INFORMATION
  Report Type: Spontaneous
  Country: US (occurrence: US)
  Receive Date: 20211019
  Receipt Date: 20211019
  Transmission Date: 20220303
  Serious: No
  Sender: FDA-Public Use
  Company Number: US-BAYER-2021A232451

PATIENT
  Sex: Female

DRUGS (1)
  1. MIRENA [Suspect]
     Active Substance: LEVONORGESTREL
     Indication: Contraception
     Dosage: 20 ?G, CONT
     Route: 015
     Dates: start: 20210708, end: 20210708

REACTIONS (3)
  - Procedural pain [None]
  - Clamping of blood vessel [None]
  - Complication of device insertion [None]

NARRATIVE: CASE EVENT DATE: 20210708
